FAERS Safety Report 4494497-9 (Version None)
Quarter: 2004Q4

REPORT INFORMATION
  Report Type: 
  Country: None (occurrence: None)
  Receive Date: 20041102
  Receipt Date: 20041025
  Transmission Date: 20050328
  Serious: Yes (Life-Threatening, Hospitalization)
  Sender: FDA-Public Use
  Company Number: K200401660

PATIENT
  Age: 39 Year
  Sex: Female

DRUGS (6)
  1. SEPTRA TABLETS/SEPTRA DS TABLETS (TRIMETHOPRIM, SULFAMETHOXAZOE) TALET [Suspect]
     Indication: PROPHYLAXIS
     Dosage: BID, ORAL
     Route: 048
     Dates: start: 20040101, end: 20040514
  2. COMBIVIR [Suspect]
     Indication: HIV INFECTION
     Dosage: BID, ORAL
     Route: 048
     Dates: start: 20040101, end: 20040514
  3. VIRACEPT ^AGOURON^ (NELFINAVIR MESILATE) [Concomitant]
  4. CLONAZEPAM [Concomitant]
  5. REXER (MIRTAZAPINE) [Concomitant]
  6. METHOTRIMEPRAZINE (METHOTRIMEPRAZINE) [Concomitant]

REACTIONS (2)
  - DRUG INTERACTION [None]
  - PANCYTOPENIA [None]
